FAERS Safety Report 12109274 (Version 2)
Quarter: 2020Q2

REPORT INFORMATION
  Report Type: Spontaneous
  Country: US (occurrence: US)
  Receive Date: 20160224
  Receipt Date: 20200618
  Transmission Date: 20200713
  Serious: No
  Sender: FDA-Public Use
  Company Number: US-PFIZER INC-2016108289

PATIENT
  Age: 54 Year
  Sex: Female

DRUGS (1)
  1. GABAPENTIN. [Suspect]
     Active Substance: GABAPENTIN
     Indication: PAIN
     Dosage: UNK

REACTIONS (7)
  - Headache [Unknown]
  - Depression [Unknown]
  - Asthenia [Unknown]
  - Drug ineffective [Unknown]
  - Anxiety [Unknown]
  - Nausea [Unknown]
  - Malaise [Unknown]
